FAERS Safety Report 16473546 (Version 1)
Quarter: 2019Q2

REPORT INFORMATION
  Report Type: Spontaneous
  Country: US (occurrence: US)
  Receive Date: 20190625
  Receipt Date: 20190625
  Transmission Date: 20190711
  Serious: Yes (Other)
  Sender: FDA-Public Use
  Company Number: US-PFIZER INC-2019265806

PATIENT
  Age: 67 Year
  Sex: Female
  Weight: 61.69 kg

DRUGS (3)
  1. LYRICA [Suspect]
     Active Substance: PREGABALIN
     Indication: PAIN IN EXTREMITY
     Dosage: UNK, 3X/DAY
     Route: 048
  2. LANTUS [Concomitant]
     Active Substance: INSULIN GLARGINE
     Dosage: UNK
     Route: 048
  3. LYRICA [Suspect]
     Active Substance: PREGABALIN
     Dosage: 200 MG, 2X/DAY
     Route: 048

REACTIONS (1)
  - Cerebrovascular accident [Unknown]
